FAERS Safety Report 8227699-6 (Version None)
Quarter: 2012Q1

REPORT INFORMATION
  Report Type: 
  Country: None (occurrence: None)
  Receive Date: 20120322
  Receipt Date: 20120319
  Transmission Date: 20120608
  Serious: Yes (Death)
  Sender: FDA-Public Use
  Company Number: US-CELGENEUS-163-21880-12032078

PATIENT
  Sex: Male

DRUGS (14)
  1. ATENOLOL [Concomitant]
     Dosage: 50 MILLIGRAM
     Route: 065
  2. PROCRIT [Concomitant]
     Dosage: 10000/ML
     Route: 065
  3. ASCORBIC ACID [Concomitant]
     Dosage: 1000 MILLIGRAM
     Route: 065
  4. REVLIMID [Suspect]
     Dosage: 10 MILLIGRAM
     Route: 048
     Dates: start: 20120118, end: 20120302
  5. NOVOLOG [Concomitant]
     Route: 065
  6. MAGNESIUM [Concomitant]
     Dosage: 300 MILLIGRAM
     Route: 065
  7. XALATAN SOL [Concomitant]
     Dosage: .005 PERCENT
     Route: 065
  8. HUMULIN PEN [Concomitant]
     Dosage: 70/30
     Route: 065
  9. LEUKINE [Concomitant]
     Dosage: 250 MICROGRAM
     Route: 065
  10. ALPHAGAN P SOL [Concomitant]
     Dosage: .1 PERCENT
     Route: 065
  11. CALCIUM + D [Concomitant]
     Route: 065
  12. LASIX [Concomitant]
     Dosage: 40 MILLIGRAM
     Route: 065
  13. MEGACE ES [Concomitant]
     Route: 065
  14. PROMETHAZINE [Concomitant]
     Dosage: 12.5 MILLIGRAM
     Route: 065

REACTIONS (1)
  - DEATH [None]
